FAERS Safety Report 6840037-6 (Version None)
Quarter: 2010Q3

REPORT INFORMATION
  Report Type: 
  Country: None (occurrence: None)
  Receive Date: 20100714
  Receipt Date: 20100630
  Transmission Date: 20110219
  Serious: No
  Sender: FDA-Public Use
  Company Number: DE-ROCHE-584606

PATIENT
  Sex: Female
  Weight: 65 kg

DRUGS (1)
  1. BEVACIZUMAB [Suspect]
     Dosage: DOSAGE REPORTED AS 960.00.  FORM: LIQUID. FREQUENCY TAKEN FROM CODING GUIDELINE.
     Route: 042
     Dates: start: 20080109

REACTIONS (1)
  - SPIDER VEIN [None]
